FAERS Safety Report 4895075-X (Version None)
Quarter: 2006Q1

REPORT INFORMATION
  Report Type: 
  Country: None (occurrence: None)
  Receive Date: 20060130
  Receipt Date: 20060123
  Transmission Date: 20060701
  Serious: Yes (Hospitalization)
  Sender: FDA-Public Use
  Company Number: PHEH2006US01310

PATIENT

DRUGS (1)
  1. ZELNORM [Suspect]
     Dosage: UNK

REACTIONS (1)
  - INTESTINAL OBSTRUCTION [None]
